FAERS Safety Report 4946295-7 (Version None)
Quarter: 2006Q1

REPORT INFORMATION
  Report Type: 
  Country: None (occurrence: None)
  Receive Date: 20060317
  Receipt Date: 20060222
  Transmission Date: 20060701
  Serious: Yes (Death)
  Sender: FDA-Public Use
  Company Number: PHEH2006US02505

PATIENT
  Age: 85 Year
  Sex: Female

DRUGS (8)
  1. MIACALCIN [Suspect]
     Indication: OSTEOPOROSIS
  2. HYDERGINE [Concomitant]
  3. NEURONTIN [Concomitant]
  4. PROZAC [Concomitant]
  5. ARICEPT [Concomitant]
  6. SINEMET [Concomitant]
  7. PRILOSEC [Concomitant]
  8. ENULOSE [Concomitant]

REACTIONS (2)
  - CARDIO-RESPIRATORY ARREST [None]
  - CEREBROVASCULAR ACCIDENT [None]
